FAERS Safety Report 5064316-0 (Version None)
Quarter: 2006Q3

REPORT INFORMATION
  Report Type: 
  Country: None (occurrence: None)
  Receive Date: 20060728
  Receipt Date: 20060718
  Transmission Date: 20061208
  Serious: Yes (Hospitalization)
  Sender: FDA-Public Use
  Company Number: PHHO2006AR11691

PATIENT
  Age: 66 Year
  Sex: Female

DRUGS (3)
  1. ZELMAC / HTF 919A [Suspect]
     Indication: CONSTIPATION
     Dosage: 6MG ONCE OR TWICE A DAY
     Route: 048
  2. AGAROL [Concomitant]
  3. BIL 13 [Concomitant]

REACTIONS (3)
  - NEOPLASM MALIGNANT [None]
  - SURGERY [None]
  - UTERINE DISORDER [None]
